FAERS Safety Report 13487757 (Version 1)
Quarter: 2017Q2

REPORT INFORMATION
  Report Type: Spontaneous
  Country: US (occurrence: US)
  Receive Date: 20170426
  Receipt Date: 20170426
  Transmission Date: 20170830
  Serious: Yes (Other)
  Sender: FDA-Public Use
  Company Number: US-ALKERMES INC.-ALK-2016-000994

PATIENT
  Sex: Female

DRUGS (1)
  1. VIVITROL [Suspect]
     Active Substance: NALTREXONE
     Indication: ALCOHOLISM
     Dosage: 380 MG, QMO
     Route: 030

REACTIONS (5)
  - Suicidal ideation [Unknown]
  - Feeling of despair [Unknown]
  - Drug use disorder [Unknown]
  - Feelings of worthlessness [Unknown]
  - Abdominal discomfort [Unknown]
